FAERS Safety Report 25110841 (Version 1)
Quarter: 2025Q1

REPORT INFORMATION
  Report Type: Spontaneous
  Country: FR (occurrence: FR)
  Receive Date: 20250324
  Receipt Date: 20250324
  Transmission Date: 20250409
  Serious: Yes (Hospitalization)
  Sender: ALK-ABELLO
  Company Number: FR-ALKABELLO A/S-2025AA001060

PATIENT

DRUGS (1)
  1. GRAZAX [Suspect]
     Active Substance: PHLEUM PRATENSE POLLEN
     Indication: Rhinitis allergic
     Route: 060
     Dates: start: 201904, end: 202503

REACTIONS (4)
  - Rhinitis [Unknown]
  - Drug ineffective [Unknown]
  - Pruritus [Unknown]
  - Urticaria [Unknown]
